FAERS Safety Report 9697099 (Version 2)
Quarter: 2013Q4

REPORT INFORMATION
  Report Type: Spontaneous
  Country: DE (occurrence: DE)
  Receive Date: 20131120
  Receipt Date: 20131127
  Transmission Date: 20140711
  Serious: Yes (Hospitalization)
  Sender: FDA-Public Use
  Company Number: DE-BIOGENIDEC-2013BI109690

PATIENT
  Age: 54 Year
  Sex: Female
  Weight: 100 kg

DRUGS (3)
  1. AVONEX [Suspect]
     Indication: MULTIPLE SCLEROSIS
     Route: 030
     Dates: start: 19990102
  2. IBUPROFEN [Concomitant]
     Indication: PROPHYLAXIS
     Dates: start: 19990102
  3. FLUOXETIN [Concomitant]
     Indication: DEPRESSION
     Dates: start: 2006

REACTIONS (2)
  - Breast cancer [Recovered/Resolved with Sequelae]
  - Glaucoma [Recovered/Resolved]
